FAERS Safety Report 4766724-1 (Version None)
Quarter: 2005Q3

REPORT INFORMATION
  Report Type: 
  Country: None (occurrence: None)
  Receive Date: 20050912
  Receipt Date: 20050311
  Transmission Date: 20060218
  Serious: Yes (Other)
  Sender: FDA-Public Use
  Company Number: US-MERCK-0503USA02695

PATIENT
  Age: 45 Year
  Sex: Male

DRUGS (3)
  1. VIOXX [Suspect]
     Route: 048
     Dates: start: 20031103, end: 20041001
  2. NEURONTIN [Concomitant]
     Route: 065
     Dates: start: 20040630, end: 20040901
  3. AMBIEN [Concomitant]
     Route: 065
     Dates: start: 20040429, end: 20040701

REACTIONS (1)
  - MYOCARDIAL INFARCTION [None]
